FAERS Safety Report 9929401 (Version 1)
Quarter: 2014Q1

REPORT INFORMATION
  Report Type: Spontaneous
  Country: JP (occurrence: JP)
  Receive Date: 20140227
  Receipt Date: 20140227
  Transmission Date: 20141002
  Serious: Yes (Other)
  Sender: FDA-Public Use
  Company Number: JP-BRISTOL-MYERS SQUIBB COMPANY-20294377

PATIENT
  Sex: 0

DRUGS (1)
  1. KENACORT INJ [Suspect]
     Route: 014

REACTIONS (1)
  - Shock [Unknown]
